FAERS Safety Report 20665971 (Version 1)
Quarter: 2022Q2

REPORT INFORMATION
  Report Type: Spontaneous
  Country: US (occurrence: US)
  Receive Date: 20220403
  Receipt Date: 20220403
  Transmission Date: 20220721
  Serious: Yes (Other)
  Sender: FDA-Public Use
  Company Number: US-SA-SAC20220330000400

PATIENT
  Age: 66 Year
  Sex: Male

DRUGS (1)
  1. ZANTAC [Suspect]
     Active Substance: RANITIDINE HYDROCHLORIDE
     Dosage: UNK, OTHER
     Route: 065
     Dates: start: 199801, end: 201612

REACTIONS (1)
  - Bladder cancer stage II [Not Recovered/Not Resolved]

NARRATIVE: CASE EVENT DATE: 20210301
